FAERS Safety Report 7164419-0 (Version None)
Quarter: 2010Q4

REPORT INFORMATION
  Report Type: 
  Country: None (occurrence: None)
  Receive Date: 20101215
  Receipt Date: 20101203
  Transmission Date: 20110411
  Serious: Yes (Other)
  Sender: FDA-Public Use
  Company Number: TR-ELI_LILLY_AND_COMPANY-TR201012002056

PATIENT
  Sex: Female

DRUGS (3)
  1. HUMULIN R [Suspect]
     Indication: GESTATIONAL DIABETES
     Dosage: 4 U, 3/D
     Route: 058
  2. HUMULIN N [Suspect]
     Indication: GESTATIONAL DIABETES
     Dosage: 4 U, DAILY (1/D)
     Route: 058
  3. IRON [Concomitant]

REACTIONS (2)
  - ABORTION SPONTANEOUS [None]
  - DRUG EXPOSURE DURING PREGNANCY [None]
